FAERS Safety Report 5177359-3 (Version None)
Quarter: 2006Q4

REPORT INFORMATION
  Report Type: 
  Country: None (occurrence: None)
  Receive Date: 20061207
  Receipt Date: 20061124
  Transmission Date: 20070319
  Serious: Yes (Hospitalization)
  Sender: FDA-Public Use
  Company Number: 2006145481

PATIENT
  Age: 74 Year
  Sex: Male
  Weight: 95 kg

DRUGS (3)
  1. LYRICA [Suspect]
     Indication: NEUROPATHY PERIPHERAL
     Dosage: 300 MG (150 MG, 2 IN 1 D), ORAL
     Route: 048
     Dates: start: 20060215, end: 20060912
  2. LORAZEPAM [Concomitant]
  3. LAMOTRIGINE [Concomitant]

REACTIONS (4)
  - APHASIA [None]
  - HYPOXIA [None]
  - SLEEP DISORDER [None]
  - SOMNOLENCE [None]
